FAERS Safety Report 14326020 (Version 1)
Quarter: 2017Q4

REPORT INFORMATION
  Report Type: Spontaneous
  Country: US (occurrence: US)
  Receive Date: 20171226
  Receipt Date: 20171226
  Transmission Date: 20180321
  Serious: Yes (Hospitalization, Other)
  Sender: FDA-Public Use
  Company Number: US-AMGEN-USASP2017188188

PATIENT
  Age: 38 Year
  Sex: Male

DRUGS (3)
  1. INFLIXIMAB [Suspect]
     Active Substance: INFLIXIMAB
     Indication: PRODUCT USED FOR UNKNOWN INDICATION
     Route: 065
  2. ETANERCEPT [Suspect]
     Active Substance: ETANERCEPT
     Indication: PSORIASIS
  3. ETANERCEPT [Suspect]
     Active Substance: ETANERCEPT
     Indication: PSORIATIC ARTHROPATHY
     Dosage: UNK
     Route: 065

REACTIONS (16)
  - Pleural neoplasm [Unknown]
  - Arthritis bacterial [Unknown]
  - Leukocytosis [Unknown]
  - Hypoalbuminaemia [Unknown]
  - Diarrhoea [Recovered/Resolved]
  - Anaemia [Unknown]
  - Atelectasis [Unknown]
  - Hyponatraemia [Unknown]
  - Pneumonia [Unknown]
  - Lymphoedema [Unknown]
  - Faeces discoloured [Unknown]
  - Lung neoplasm [Unknown]
  - Dry skin [Unknown]
  - Hodgkin^s disease nodular sclerosis stage IV [Recovering/Resolving]
  - Pleural effusion [Unknown]
  - Erythema [Unknown]
